FAERS Safety Report 24323213 (Version 1)
Quarter: 2024Q3

REPORT INFORMATION
  Report Type: Spontaneous
  Country: US (occurrence: None)
  Receive Date: 20240913
  Receipt Date: 20240913
  Transmission Date: 20241017
  Serious: Yes (Other)
  Sender: Public
  Company Number: None

PATIENT
  Age: 63 Year
  Sex: Female

DRUGS (2)
  1. PEGASYS [Suspect]
     Active Substance: PEGINTERFERON ALFA-2A
     Indication: Essential thrombocythaemia
     Dosage: OTHER STRENGTH : 180MCG/ML;?OTHER QUANTITY : 22.5MCG;?FREQUENCY : WEEKLY;?
     Dates: start: 20240208
  2. LEQVIO [Suspect]
     Active Substance: INCLISIRAN SODIUM

REACTIONS (2)
  - Influenza like illness [None]
  - Dyspnoea [None]

NARRATIVE: CASE EVENT DATE: 20240913
